FAERS Safety Report 15186221 (Version 1)
Quarter: 2018Q3

REPORT INFORMATION
  Report Type: Report from Study
  Country: US (occurrence: US)
  Receive Date: 20180723
  Receipt Date: 20180723
  Transmission Date: 20181010
  Serious: No
  Sender: FDA-Public Use
  Company Number: US-EXELIXIS-CABO-17011111

PATIENT
  Sex: Female

DRUGS (17)
  1. CALCIUM CARBONATE. [Concomitant]
     Active Substance: CALCIUM CARBONATE
  2. LATANOPROST. [Concomitant]
     Active Substance: LATANOPROST
  3. TAMOXIFEN [Concomitant]
     Active Substance: TAMOXIFEN
  4. PANTOPRAZOLE [Concomitant]
     Active Substance: PANTOPRAZOLE
  5. VALSARTAN. [Concomitant]
     Active Substance: VALSARTAN
  6. TRAMADOL. [Concomitant]
     Active Substance: TRAMADOL
  7. ALPRAZOLAM. [Concomitant]
     Active Substance: ALPRAZOLAM
  8. LYRICA [Concomitant]
     Active Substance: PREGABALIN
  9. RESTASIS [Concomitant]
     Active Substance: CYCLOSPORINE
  10. ALBUTEROL. [Concomitant]
     Active Substance: ALBUTEROL
  11. FLOVENT [Concomitant]
     Active Substance: FLUTICASONE PROPIONATE
  12. COMETRIQ [Suspect]
     Active Substance: CABOZANTINIB S-MALATE
     Dosage: 40 MG, QD
     Route: 048
     Dates: start: 20171228
  13. VITAMIN D3 [Concomitant]
     Active Substance: CHOLECALCIFEROL
  14. TOPROL XL [Concomitant]
     Active Substance: METOPROLOL SUCCINATE
  15. COMETRIQ [Suspect]
     Active Substance: CABOZANTINIB S-MALATE
     Indication: THYROID CANCER
     Dosage: 60 MG, QD
     Route: 048
     Dates: start: 20171019, end: 20171222
  16. DOCUSATE CALCIUM. [Concomitant]
     Active Substance: DOCUSATE CALCIUM
  17. ASPIRIN. [Concomitant]
     Active Substance: ASPIRIN

REACTIONS (1)
  - Palmar-plantar erythrodysaesthesia syndrome [Recovering/Resolving]
